FAERS Safety Report 9529423 (Version 2)
Quarter: 2013Q4

REPORT INFORMATION
  Report Type: Report from Study
  Country: US (occurrence: US)
  Receive Date: 20130917
  Receipt Date: 20131106
  Transmission Date: 20140711
  Serious: No
  Sender: FDA-Public Use
  Company Number: PHEH2013US018643

PATIENT
  Sex: Female

DRUGS (5)
  1. TASIGNA [Suspect]
     Indication: CHRONIC MYELOID LEUKAEMIA
     Dosage: 300 MG, Q12H
     Route: 048
     Dates: start: 20130316
  2. ZOLOFT [Concomitant]
  3. AMBIEN [Concomitant]
     Dates: start: 20130903
  4. ZOFRAN [Concomitant]
  5. BUTALBITAL AND ACETAMINOPHEN [Concomitant]

REACTIONS (2)
  - Labelled drug-food interaction medication error [Unknown]
  - Pruritus [Not Recovered/Not Resolved]
